FAERS Safety Report 9680311 (Version 1)
Quarter: 2013Q4

REPORT INFORMATION
  Report Type: Report from Study
  Country: GB (occurrence: GB)
  Receive Date: 20131111
  Receipt Date: 20131111
  Transmission Date: 20140711
  Serious: Yes (Hospitalization)
  Sender: FDA-Public Use
  Company Number: GB-JNJFOC-20131103085

PATIENT
  Age: 79 Year
  Sex: Male

DRUGS (2)
  1. EVICEL [Suspect]
     Indication: INTESTINAL ANASTOMOSIS
     Route: 061
     Dates: start: 20130116
  2. ALL OTHER THERAPEUTIC PRODUCT [Concomitant]
     Indication: INTESTINAL ANASTOMOSIS
     Route: 061
     Dates: start: 20130116

REACTIONS (2)
  - Anastomotic leak [Recovered/Resolved]
  - Myocardial infarction [Recovered/Resolved]
